FAERS Safety Report 5633954-6 (Version None)
Quarter: 2008Q1

REPORT INFORMATION
  Report Type: 
  Country: None (occurrence: None)
  Receive Date: 20080215
  Receipt Date: 20080211
  Transmission Date: 20080703
  Serious: Yes (Life-Threatening, Hospitalization, Other)
  Sender: FDA-Public Use
  Company Number: 08022413

PATIENT
  Age: 16 Year
  Sex: Female

DRUGS (2)
  1. CARBAMAZEPINE [Suspect]
     Indication: TUBEROUS SCLEROSIS
     Dosage: 400MG, QD, ORAL
     Route: 048
  2. VALPROATE SODIUM [Suspect]
     Indication: TUBEROUS SCLEROSIS
     Dosage: 1G, QD, ORAL
     Route: 048

REACTIONS (14)
  - ALANINE AMINOTRANSFERASE INCREASED [None]
  - ASPARTATE AMINOTRANSFERASE INCREASED [None]
  - BLOOD ALKALINE PHOSPHATASE INCREASED [None]
  - CHOLESTASIS [None]
  - CYTOLYTIC HEPATITIS [None]
  - DRUG RASH WITH EOSINOPHILIA AND SYSTEMIC SYMPTOMS [None]
  - FACE OEDEMA [None]
  - GAMMA-GLUTAMYLTRANSFERASE INCREASED [None]
  - LEUKOCYTOSIS [None]
  - LYMPHADENOPATHY [None]
  - PYREXIA [None]
  - RASH GENERALISED [None]
  - RASH MACULO-PAPULAR [None]
  - SKIN EXFOLIATION [None]
